FAERS Safety Report 22345911 (Version 5)
Quarter: 2024Q3

REPORT INFORMATION
  Report Type: Spontaneous
  Country: US (occurrence: US)
  Receive Date: 20230519
  Receipt Date: 20240718
  Transmission Date: 20241017
  Serious: No
  Sender: BRISTOL MYERS SQUIBB
  Company Number: US-BRISTOL-MYERS SQUIBB COMPANY-2023-071260

PATIENT
  Age: 68 Year
  Sex: Female
  Weight: 117.93 kg

DRUGS (12)
  1. ELIQUIS [Suspect]
     Active Substance: APIXABAN
     Indication: Atrial fibrillation
     Route: 048
  2. ASPIRIN [Concomitant]
     Active Substance: ASPIRIN
     Indication: Musculoskeletal stiffness
     Dosage: 325 MG
  3. ASPIRIN [Concomitant]
     Active Substance: ASPIRIN
     Indication: Pain
  4. ALEVE [Concomitant]
     Active Substance: NAPROXEN SODIUM
     Indication: Musculoskeletal stiffness
  5. ALEVE [Concomitant]
     Active Substance: NAPROXEN SODIUM
     Indication: Pain
  6. FISH OIL [Concomitant]
     Active Substance: FISH OIL
     Indication: Pain
  7. FISH OIL [Concomitant]
     Active Substance: FISH OIL
     Indication: Musculoskeletal stiffness
  8. TYLENOL [Concomitant]
     Active Substance: ACETAMINOPHEN
     Indication: Pain
  9. TYLENOL [Concomitant]
     Active Substance: ACETAMINOPHEN
     Indication: Musculoskeletal stiffness
  10. DILTIAZEM [Concomitant]
     Active Substance: DILTIAZEM
     Indication: Product used for unknown indication
  11. METOPROLOL TARTRATE [Concomitant]
     Active Substance: METOPROLOL TARTRATE
     Indication: Product used for unknown indication
  12. EZETIMIBE [Concomitant]
     Active Substance: EZETIMIBE
     Indication: Blood cholesterol abnormal

REACTIONS (4)
  - Pain [Unknown]
  - Joint stiffness [Unknown]
  - Arthritis [Unknown]
  - General physical health deterioration [Unknown]
